FAERS Safety Report 5351469-X (Version None)
Quarter: 2007Q2

REPORT INFORMATION
  Report Type: 
  Country: None (occurrence: None)
  Receive Date: 20070521
  Receipt Date: 20070312
  Transmission Date: 20071010
  Serious: No
  Sender: FDA-Public Use
  Company Number: WAES 0701USA00728

PATIENT
  Age: 78 Year
  Sex: Male

DRUGS (4)
  1. JANUVIA [Suspect]
     Indication: BLOOD GLUCOSE
     Dosage: 25 MG/DAILY/PO
     Route: 048
     Dates: start: 20061213
  2. LIPITOR [Concomitant]
  3. GLIPIZIDE [Concomitant]
  4. METFORMIN [Concomitant]

REACTIONS (3)
  - DYSGEUSIA [None]
  - PHARYNGOLARYNGEAL PAIN [None]
  - WRONG TECHNIQUE IN DRUG USAGE PROCESS [None]
